FAERS Safety Report 15163953 (Version 2)
Quarter: 2018Q3

REPORT INFORMATION
  Report Type: Report from Study
  Country: DE (occurrence: DE)
  Receive Date: 20180719
  Receipt Date: 20180921
  Transmission Date: 20181010
  Serious: Yes (Hospitalization, Other)
  Sender: FDA-Public Use
  Company Number: DE-TEVA-2018-DE-926745

PATIENT
  Age: 54 Year
  Sex: Male
  Weight: 120 kg

DRUGS (90)
  1. MEROPENEM. [Concomitant]
     Active Substance: MEROPENEM
     Dosage: 3000 MILLIGRAM DAILY;
     Route: 042
     Dates: start: 20160317, end: 20160323
  2. CLONT (GERMANY) [Concomitant]
     Dosage: 1500 MILLIGRAM DAILY;
     Route: 042
     Dates: start: 20161120, end: 20161122
  3. 5?FLUOROURACIL [Concomitant]
     Active Substance: FLUOROURACIL
     Route: 041
     Dates: start: 20160212, end: 20160323
  4. DIFLUCAN [Concomitant]
     Active Substance: FLUCONAZOLE
     Dosage: 200 MILLIGRAM DAILY; DAILY DOSE: 200 MG MILLGRAM(S) EVERY DAYS
     Route: 042
     Dates: start: 20161121, end: 20161122
  5. 5?FLUOROURACIL [Concomitant]
     Active Substance: FLUOROURACIL
     Route: 040
     Dates: start: 20160404, end: 20160404
  6. MEROPENEM. [Concomitant]
     Active Substance: MEROPENEM
     Dosage: 300 MILLIGRAM DAILY;
     Route: 042
     Dates: start: 20161208, end: 20161212
  7. MEROPENEM. [Concomitant]
     Active Substance: MEROPENEM
     Dosage: 3000 MILLIGRAM DAILY;
     Route: 042
     Dates: start: 20160215, end: 20160220
  8. FLUOROURACIL. [Suspect]
     Active Substance: FLUOROURACIL
     Route: 041
     Dates: start: 20161103, end: 20161105
  9. FOLINIC ACID [Suspect]
     Active Substance: LEUCOVORIN
     Indication: COLORECTAL CANCER
     Route: 042
     Dates: start: 20160802, end: 20160816
  10. AVASTIN [Suspect]
     Active Substance: BEVACIZUMAB
     Indication: COLORECTAL CANCER
     Dosage: 29/FEB/2016: MOST RECENT DOSE
     Route: 042
     Dates: start: 20160212
  11. OXALIPLATIN. [Concomitant]
     Active Substance: OXALIPLATIN
     Indication: COLORECTAL CANCER
     Dosage: MOST RECENT DOSE : 29/FEB/2016
     Route: 042
     Dates: start: 20160212, end: 20160321
  12. MEROPENEM. [Concomitant]
     Active Substance: MEROPENEM
     Route: 048
     Dates: start: 20161213, end: 20161214
  13. REKAWAN [Concomitant]
     Active Substance: POTASSIUM CHLORIDE
     Route: 048
     Dates: start: 20160625, end: 20160630
  14. NEXIUM [Concomitant]
     Active Substance: ESOMEPRAZOLE MAGNESIUM
     Dosage: 20 MILLIGRAM DAILY;
     Route: 048
  15. MEROPENEM. [Concomitant]
     Active Substance: MEROPENEM
     Dosage: 1500 MILLIGRAM DAILY;
     Route: 042
     Dates: start: 20160317, end: 20160323
  16. TAZOBAC [Concomitant]
     Active Substance: PIPERACILLIN SODIUM\TAZOBACTAM SODIUM
     Indication: FEBRILE INFECTION
     Dosage: 13500 MILLIGRAM DAILY;
     Route: 042
     Dates: start: 20160608, end: 20160613
  17. DEXAMETHASON [Concomitant]
     Active Substance: DEXAMETHASONE
     Dosage: DAILY DOSE: 1 MG MILLGRAM(S) EVERY DAYS
     Route: 048
     Dates: start: 201607
  18. REKAWAN [Concomitant]
     Active Substance: POTASSIUM CHLORIDE
     Dates: start: 20160624, end: 20160625
  19. FLUOROURACIL. [Suspect]
     Active Substance: FLUOROURACIL
     Route: 040
     Dates: start: 20161103, end: 20161103
  20. FLUOROURACIL. [Suspect]
     Active Substance: FLUOROURACIL
     Route: 040
     Dates: start: 20160802, end: 20160816
  21. FLUOROURACIL. [Suspect]
     Active Substance: FLUOROURACIL
     Route: 040
     Dates: start: 20160711, end: 20160711
  22. DEXAMETHASON [Concomitant]
     Active Substance: DEXAMETHASONE
     Dosage: DAILY DOSE: 1 MG MILLGRAM(S) EVERY DAYS
     Route: 048
     Dates: start: 20160511
  23. 5?FLUOROURACIL [Concomitant]
     Active Substance: FLUOROURACIL
     Route: 041
     Dates: start: 20160404, end: 20160405
  24. DEXAMETHASON [Concomitant]
     Active Substance: DEXAMETHASONE
     Route: 048
     Dates: start: 201607
  25. MEROPENEM. [Concomitant]
     Active Substance: MEROPENEM
     Dosage: DAILY DOSE: 1500 MG MILLGRAM(S) EVERY DAYS
     Route: 042
     Dates: start: 20160620, end: 20160630
  26. POTASSIUM CHLORIDE. [Concomitant]
     Active Substance: POTASSIUM CHLORIDE
     Route: 042
     Dates: start: 20161123
  27. OXALIPLATIN. [Concomitant]
     Active Substance: OXALIPLATIN
     Route: 042
     Dates: start: 20160627, end: 20160627
  28. IRINOTECAN [Concomitant]
     Active Substance: IRINOTECAN
     Indication: COLORECTAL CANCER
     Route: 042
     Dates: start: 20160609, end: 20160609
  29. REKAWAN [Concomitant]
     Active Substance: POTASSIUM CHLORIDE
     Indication: HYPOKALAEMIA
     Dosage: 3600 MILLIGRAM DAILY;
     Route: 048
     Dates: start: 20161123, end: 20161128
  30. FLUOROURACIL. [Suspect]
     Active Substance: FLUOROURACIL
     Route: 040
     Dates: start: 20160511, end: 20160526
  31. FLUOROURACIL. [Suspect]
     Active Substance: FLUOROURACIL
     Route: 041
     Dates: start: 20160802, end: 20160818
  32. FLUOROURACIL. [Suspect]
     Active Substance: FLUOROURACIL
     Route: 041
     Dates: start: 20160404, end: 20160405
  33. FLUOROURACIL. [Suspect]
     Active Substance: FLUOROURACIL
     Route: 041
     Dates: start: 20160627, end: 20160629
  34. FOLINIC ACID [Suspect]
     Active Substance: LEUCOVORIN
     Route: 042
     Dates: start: 20160627, end: 20160627
  35. FOLINIC ACID [Suspect]
     Active Substance: LEUCOVORIN
     Route: 042
     Dates: start: 20160511, end: 20160524
  36. AVASTIN [Suspect]
     Active Substance: BEVACIZUMAB
     Dosage: 29/FEB/2016: MOST RECENT DOSE
     Route: 042
     Dates: start: 20160229
  37. TAZOBAC [Concomitant]
     Active Substance: PIPERACILLIN SODIUM\TAZOBACTAM SODIUM
     Indication: INFECTION
     Dosage: 13500 MILLIGRAM DAILY;
     Route: 042
     Dates: start: 20160214, end: 20160215
  38. DEXAMETHASON [Concomitant]
     Active Substance: DEXAMETHASONE
     Dosage: 1 MILLIGRAM DAILY;
     Route: 048
     Dates: start: 201607
  39. TAZOBAC [Concomitant]
     Active Substance: PIPERACILLIN SODIUM\TAZOBACTAM SODIUM
     Indication: PNEUMONIA
     Dosage: 13500 MILLIGRAM DAILY;
     Route: 042
     Dates: start: 20160405, end: 20160411
  40. NEUPOGEN [Concomitant]
     Active Substance: FILGRASTIM
     Indication: FEBRILE NEUTROPENIA
     Dosage: 48000 IU (INTERNATIONAL UNIT) DAILY;
     Route: 058
     Dates: start: 20160621, end: 20160623
  41. MEROPENEM. [Concomitant]
     Active Substance: MEROPENEM
     Route: 042
     Dates: start: 20160828, end: 20160906
  42. OXALIPLATIN. [Concomitant]
     Active Substance: OXALIPLATIN
     Route: 042
     Dates: start: 20160404, end: 20160404
  43. DIFLUCAN [Concomitant]
     Active Substance: FLUCONAZOLE
     Dosage: 400 MILLIGRAM DAILY;
     Route: 042
     Dates: start: 20161120, end: 20161121
  44. OXALIPLATIN. [Concomitant]
     Active Substance: OXALIPLATIN
     Route: 042
     Dates: start: 20160609, end: 20160609
  45. MEROPENEM. [Concomitant]
     Active Substance: MEROPENEM
     Dosage: 1500 MILLIGRAM DAILY;
     Route: 042
     Dates: start: 20160828, end: 20160906
  46. FLUOROURACIL. [Suspect]
     Active Substance: FLUOROURACIL
     Route: 040
     Dates: start: 20160404, end: 20160404
  47. FOLINIC ACID [Suspect]
     Active Substance: LEUCOVORIN
     Route: 042
     Dates: start: 20160816, end: 20160820
  48. FOLINIC ACID [Suspect]
     Active Substance: LEUCOVORIN
     Route: 042
     Dates: start: 20160404, end: 20160404
  49. AVASTIN [Suspect]
     Active Substance: BEVACIZUMAB
     Route: 042
     Dates: start: 20160404, end: 20160404
  50. POTASSIUM CHLORIDE. [Concomitant]
     Active Substance: POTASSIUM CHLORIDE
     Indication: HYPOKALAEMIA
     Route: 042
     Dates: start: 20161103
  51. FOLINIC ACID [Concomitant]
     Active Substance: LEUCOVORIN
     Indication: FEBRILE INFECTION
     Route: 042
     Dates: start: 20160404, end: 20160404
  52. FOLINIC ACID [Concomitant]
     Active Substance: LEUCOVORIN
     Dosage: DAILY DOSE: 896 MG MILLGRAM(S) EVERY 2 WEEKS
     Route: 042
     Dates: start: 20160711, end: 20170711
  53. OXALIPLATIN. [Concomitant]
     Active Substance: OXALIPLATIN
     Dosage: 170?224 MG
     Dates: start: 20160404, end: 20160711
  54. DEXAMETHASON [Concomitant]
     Active Substance: DEXAMETHASONE
     Indication: TUMOUR ASSOCIATED FEVER
     Dosage: 4 MILLIGRAM DAILY;
     Route: 048
     Dates: start: 201601, end: 20160209
  55. 5?FLUOROURACIL [Concomitant]
     Active Substance: FLUOROURACIL
     Indication: COLORECTAL CANCER
     Route: 040
     Dates: start: 20160212, end: 20160321
  56. MEROPENEM. [Concomitant]
     Active Substance: MEROPENEM
     Dosage: 1500 MILLIGRAM DAILY;
     Route: 042
     Dates: start: 20160620, end: 20160630
  57. DEXAMETHASON [Concomitant]
     Active Substance: DEXAMETHASONE
     Dosage: 1 MILLIGRAM DAILY;
     Route: 048
     Dates: start: 20160620
  58. FLUOROURACIL. [Suspect]
     Active Substance: FLUOROURACIL
     Indication: COLORECTAL CANCER
     Route: 041
     Dates: start: 20160711, end: 20160713
  59. FLUOROURACIL. [Suspect]
     Active Substance: FLUOROURACIL
     Route: 041
     Dates: start: 20160511, end: 20160526
  60. FLUOROURACIL. [Suspect]
     Active Substance: FLUOROURACIL
     Route: 042
     Dates: start: 20160816, end: 20160820
  61. FOLINIC ACID [Suspect]
     Active Substance: LEUCOVORIN
     Route: 042
     Dates: start: 20160711, end: 20160711
  62. FOLINIC ACID [Suspect]
     Active Substance: LEUCOVORIN
     Route: 042
     Dates: start: 20161103, end: 20161103
  63. FOLINIC ACID [Suspect]
     Active Substance: LEUCOVORIN
     Route: 042
     Dates: start: 20160212, end: 20160323
  64. AVASTIN [Suspect]
     Active Substance: BEVACIZUMAB
     Dosage: 460 MG MOST RECENT DOSE ON 20/AUG/2016
     Route: 042
     Dates: start: 20160816
  65. DEXAMETHASON [Concomitant]
     Active Substance: DEXAMETHASONE
     Dosage: 2 MILLIGRAM DAILY;
     Route: 048
     Dates: start: 20161215, end: 20161221
  66. MEROPENEM. [Concomitant]
     Active Substance: MEROPENEM
     Dosage: 3000 MILLIGRAM DAILY;
     Route: 065
     Dates: start: 20160420, end: 201605
  67. FOLINIC ACID [Concomitant]
     Active Substance: LEUCOVORIN
     Indication: COLORECTAL CANCER
     Route: 042
     Dates: start: 20160212, end: 20160321
  68. POTASSIUM CHLORIDE. [Concomitant]
     Active Substance: POTASSIUM CHLORIDE
     Route: 042
     Dates: start: 20161124, end: 20161125
  69. CLONT (GERMANY) [Concomitant]
     Indication: DIARRHOEA
     Dosage: 1500 MILLIGRAM DAILY;
     Route: 042
     Dates: start: 20160620, end: 20160624
  70. REKAWAN [Concomitant]
     Active Substance: POTASSIUM CHLORIDE
     Dates: start: 20160625, end: 20160630
  71. NEXIUM [Concomitant]
     Active Substance: ESOMEPRAZOLE MAGNESIUM
     Indication: PROPHYLAXIS
     Dosage: 40 MILLIGRAM DAILY;
     Route: 048
     Dates: start: 201601
  72. DEXAMETHASON [Concomitant]
     Active Substance: DEXAMETHASONE
     Route: 048
     Dates: start: 20160210, end: 20160404
  73. FOLINIC ACID [Suspect]
     Active Substance: LEUCOVORIN
     Route: 042
     Dates: start: 20160609, end: 20160611
  74. MEROPENEM. [Concomitant]
     Active Substance: MEROPENEM
     Indication: INFECTION
     Dosage: 1500 MILLIGRAM DAILY;
     Route: 042
     Dates: start: 20160311, end: 20160316
  75. FOLINIC ACID [Concomitant]
     Active Substance: LEUCOVORIN
     Route: 042
     Dates: start: 20160608, end: 20160613
  76. KONAKION [Concomitant]
     Active Substance: PHYTONADIONE
     Dosage: 10 MILLIGRAM DAILY; DAILY DOSE: 10 MG MILLGRAM(S) EVERY DAYS
     Route: 042
     Dates: start: 20160621, end: 20160621
  77. TAZOBAC [Concomitant]
     Active Substance: PIPERACILLIN SODIUM\TAZOBACTAM SODIUM
     Dates: start: 20160608, end: 20160613
  78. OXALIPLATIN. [Concomitant]
     Active Substance: OXALIPLATIN
     Route: 042
     Dates: start: 20160511, end: 20160524
  79. DEXAMETHASON [Concomitant]
     Active Substance: DEXAMETHASONE
     Dosage: 1 MILLIGRAM DAILY; DAILY DOSE: 1 MG MILLGRAM(S) EVERY DAYS
     Route: 048
     Dates: start: 20160511
  80. FLUOROURACIL. [Suspect]
     Active Substance: FLUOROURACIL
     Route: 041
     Dates: start: 20160212, end: 20160323
  81. FLUOROURACIL. [Suspect]
     Active Substance: FLUOROURACIL
     Route: 041
     Dates: start: 20160609, end: 20160611
  82. FLUOROURACIL. [Suspect]
     Active Substance: FLUOROURACIL
     Route: 040
     Dates: start: 20160212, end: 20160323
  83. TAZOBAC [Concomitant]
     Active Substance: PIPERACILLIN SODIUM\TAZOBACTAM SODIUM
     Dosage: DAILY DOSE: 13500 MG MILLGRAM(S) EVERY DAYS
     Route: 042
     Dates: start: 20161120, end: 20161130
  84. DEXAMETHASON [Concomitant]
     Active Substance: DEXAMETHASONE
     Dosage: 2 MILLIGRAM DAILY;
     Route: 048
     Dates: start: 20160210, end: 20160404
  85. CLEXANE [Concomitant]
     Active Substance: ENOXAPARIN SODIUM
     Dosage: 1.6 ML DAILY; AFTER PULMONARY EMBOLISM
     Route: 058
     Dates: start: 201604
  86. DEXAMETHASON [Concomitant]
     Active Substance: DEXAMETHASONE
     Route: 048
     Dates: start: 20160511
  87. PANTOPRAZOL [Concomitant]
     Active Substance: PANTOPRAZOLE SODIUM
     Dosage: 20 MILLIGRAM DAILY; FOR STOMACH PROTECTION
     Route: 048
  88. REKAWAN [Concomitant]
     Active Substance: POTASSIUM CHLORIDE
     Indication: HYPOKALAEMIA
     Route: 048
     Dates: start: 20160624, end: 20160625
  89. TAZOBAC [Concomitant]
     Active Substance: PIPERACILLIN SODIUM\TAZOBACTAM SODIUM
     Dosage: 13500 MILLIGRAM DAILY;
     Route: 042
     Dates: start: 20161120, end: 20161130
  90. MEROPENEM. [Concomitant]
     Active Substance: MEROPENEM
     Dosage: DAILY DOSE: 300 MG MILLGRAM(S) EVERY DAYS
     Route: 042
     Dates: start: 20161208, end: 20161212

REACTIONS (13)
  - Pulmonary infarction [Recovered/Resolved]
  - Pulmonary embolism [Recovered/Resolved]
  - Enteritis [Recovering/Resolving]
  - Infectious pleural effusion [Recovered/Resolved]
  - Febrile neutropenia [Recovered/Resolved]
  - Pneumonia [Recovered/Resolved]
  - Urinary tract infection [Unknown]
  - Febrile infection [Recovered/Resolved]
  - Urinary tract infection [Unknown]
  - Hypokalaemia [Recovered/Resolved]
  - Cholangitis [Recovered/Resolved]
  - Diarrhoea [Recovered/Resolved]
  - Iatrogenic infection [Recovered/Resolved]

NARRATIVE: CASE EVENT DATE: 20160311
